FAERS Safety Report 7429667-0 (Version None)
Quarter: 2011Q2

REPORT INFORMATION
  Report Type: 
  Country: None (occurrence: None)
  Receive Date: 20110421
  Receipt Date: 20110412
  Transmission Date: 20111010
  Serious: No
  Sender: FDA-Public Use
  Company Number: CA-JNJFOC-20110312318

PATIENT
  Age: 35 Year
  Sex: Male

DRUGS (2)
  1. RISPERDAL CONSTA [Suspect]
     Indication: PRODUCT USED FOR UNKNOWN INDICATION
     Route: 030
  2. RISPERDAL CONSTA [Suspect]
     Route: 030

REACTIONS (2)
  - PRODUCT RECONSTITUTION ISSUE [None]
  - DRUG DOSE OMISSION [None]
